FAERS Safety Report 16874070 (Version 9)
Quarter: 2021Q4

REPORT INFORMATION
  Report Type: Report from Study
  Country: CN (occurrence: CN)
  Receive Date: 20191001
  Receipt Date: 20211223
  Transmission Date: 20220303
  Serious: Yes (Death, Other)
  Sender: FDA-Public Use
  Company Number: CN-FOSUNKITE-FOSUNKITE-20190048

PATIENT
  Age: 63 Year
  Sex: Female
  Weight: 70.7 kg

DRUGS (94)
  1. AXICABTAGENE CILOLEUCEL [Suspect]
     Active Substance: AXICABTAGENE CILOLEUCEL
     Indication: Diffuse large B-cell lymphoma
     Dosage: 68 ML, ONCE
     Route: 042
     Dates: start: 20190902, end: 20190902
  2. CYCLOPHOSPHAMIDE [Suspect]
     Active Substance: CYCLOPHOSPHAMIDE
     Indication: Bone marrow conditioning regimen
     Dosage: 870 MG (500MG/M2), QD
     Route: 042
     Dates: start: 20190828, end: 20190830
  3. FLUDARABINE [Suspect]
     Active Substance: FLUDARABINE PHOSPHATE
     Indication: Bone marrow conditioning regimen
     Dosage: 52.2 MG (30MG/M2), QD
     Route: 042
     Dates: start: 20190828, end: 20190830
  4. PALONOSETRON HYDROCHLORIDE [Concomitant]
     Active Substance: PALONOSETRON HYDROCHLORIDE
     Indication: Prophylaxis
     Dosage: 0.5 MG, QD
     Route: 048
     Dates: start: 20190828, end: 20190830
  5. OMEPRAZOLE [Concomitant]
     Active Substance: OMEPRAZOLE
     Indication: Prophylaxis
     Dosage: 20 MG, QD
     Route: 048
     Dates: start: 20190828, end: 20190831
  6. OMEPRAZOLE [Concomitant]
     Active Substance: OMEPRAZOLE
     Dosage: 40 MG, BID
     Route: 042
     Dates: start: 20190907, end: 20190908
  7. OMEPRAZOLE [Concomitant]
     Active Substance: OMEPRAZOLE
     Dosage: 40 MG, TID
     Route: 042
     Dates: start: 20190909, end: 20190909
  8. BUCINNAZINE HYDROCHLORIDE [Concomitant]
     Indication: Pain
     Dosage: 100 MG, ST
     Route: 030
     Dates: start: 20190828, end: 20190828
  9. FENTANYL TRANSDERMAL SYSTEM [Concomitant]
     Active Substance: FENTANYL
     Indication: Pain
     Dosage: 4200 UG, SINGLE
     Route: 003
     Dates: start: 20190829, end: 20190829
  10. FENTANYL TRANSDERMAL SYSTEM [Concomitant]
     Active Substance: FENTANYL
     Dosage: 4200 UG, SINGLE
     Route: 003
     Dates: start: 20190901, end: 20190901
  11. CEFOTAXIME SODIUM [Concomitant]
     Active Substance: CEFOTAXIME SODIUM
     Indication: Infection prophylaxis
     Dosage: 2 G, QD
     Route: 041
     Dates: start: 20190829, end: 20190903
  12. POLYMYXIN B [Concomitant]
     Active Substance: POLYMYXIN B
     Indication: Infection prophylaxis
     Dosage: 60 G, SINGLE
     Route: 003
     Dates: start: 20190830, end: 20190830
  13. POLYMYXIN B [Concomitant]
     Active Substance: POLYMYXIN B
     Dosage: 20 G, SINGLE
     Route: 003
     Dates: start: 20190918, end: 20190918
  14. ONDANSETRON HYDROCHLORIDE [Concomitant]
     Active Substance: ONDANSETRON HYDROCHLORIDE
     Indication: Prophylaxis of nausea and vomiting
     Dosage: 4 MG, SINGLE
     Route: 042
     Dates: start: 20190830, end: 20190830
  15. ONDANSETRON HYDROCHLORIDE [Concomitant]
     Active Substance: ONDANSETRON HYDROCHLORIDE
     Dosage: 4 MG, QD
     Route: 042
     Dates: start: 20190905, end: 20190909
  16. PANTOPRAZOLE SODIUM [Concomitant]
     Active Substance: PANTOPRAZOLE SODIUM
     Indication: Prophylaxis
     Dosage: 40 MG, QD
     Route: 048
     Dates: start: 20190901, end: 20190907
  17. PANTOPRAZOLE SODIUM [Concomitant]
     Active Substance: PANTOPRAZOLE SODIUM
     Indication: Gastrointestinal disorder therapy
  18. POTASSIUM CHLORIDE [Concomitant]
     Active Substance: POTASSIUM CHLORIDE
     Indication: Blood potassium decreased
     Dosage: 0.5 G, SINGLE
     Route: 048
     Dates: start: 20190902, end: 20190902
  19. POTASSIUM CHLORIDE [Concomitant]
     Active Substance: POTASSIUM CHLORIDE
     Indication: Haemofiltration
     Dosage: 0.5 G, TID
     Route: 048
     Dates: start: 20190903, end: 20190905
  20. POTASSIUM CHLORIDE [Concomitant]
     Active Substance: POTASSIUM CHLORIDE
     Dosage: 1 G, TID
     Route: 048
     Dates: start: 20190906, end: 20190907
  21. POTASSIUM CHLORIDE [Concomitant]
     Active Substance: POTASSIUM CHLORIDE
     Dosage: 30 ML, ONCE
     Route: 048
     Dates: start: 20190905, end: 20190905
  22. POTASSIUM CHLORIDE [Concomitant]
     Active Substance: POTASSIUM CHLORIDE
     Dosage: 40 ML, QD
     Route: 041
     Dates: start: 20190906, end: 20190907
  23. POTASSIUM CHLORIDE [Concomitant]
     Active Substance: POTASSIUM CHLORIDE
     Dosage: 30 ML, QD
     Route: 041
     Dates: start: 20190908, end: 20190909
  24. POTASSIUM CHLORIDE [Concomitant]
     Active Substance: POTASSIUM CHLORIDE
     Dosage: 50 ML, SINGLE
     Route: 041
     Dates: start: 20190909, end: 20190909
  25. POTASSIUM CHLORIDE [Concomitant]
     Active Substance: POTASSIUM CHLORIDE
     Dosage: 30 ML, SINGLE
     Dates: start: 20190917, end: 20190917
  26. POTASSIUM CHLORIDE [Concomitant]
     Active Substance: POTASSIUM CHLORIDE
     Dosage: 20 ML, QD
     Route: 041
     Dates: start: 20190919, end: 20190920
  27. POTASSIUM CHLORIDE [Concomitant]
     Active Substance: POTASSIUM CHLORIDE
     Dosage: 30 ML, QD
     Route: 041
     Dates: start: 20190921, end: 20190921
  28. POTASSIUM CHLORIDE [Concomitant]
     Active Substance: POTASSIUM CHLORIDE
     Dosage: 9 ML, Q1HR
     Dates: start: 20190909, end: 20190910
  29. POTASSIUM CHLORIDE [Concomitant]
     Active Substance: POTASSIUM CHLORIDE
     Dosage: 30 ML, SINGLE
     Route: 041
     Dates: start: 20190916, end: 20190916
  30. PROMETHAZINE HYDROCHLORIDE [Concomitant]
     Active Substance: PROMETHAZINE HYDROCHLORIDE
     Indication: Allergy prophylaxis
     Dosage: 25 MG, SINGLE
     Route: 030
     Dates: start: 20190902, end: 20190902
  31. DEXTROSE [Concomitant]
     Active Substance: DEXTROSE
     Indication: Fluid replacement
     Dosage: 500 ML, QD
     Route: 041
     Dates: start: 20190903, end: 20190906
  32. DEXTROSE [Concomitant]
     Active Substance: DEXTROSE
     Dosage: 500 ML, QD
     Route: 041
     Dates: start: 20190917, end: 20190918
  33. DEXTROSE [Concomitant]
     Active Substance: DEXTROSE
     Dosage: 500 ML, SINGLE
     Route: 041
     Dates: start: 20190921, end: 20190921
  34. DEXTROSE\SODIUM CHLORIDE [Concomitant]
     Active Substance: DEXTROSE\SODIUM CHLORIDE
     Indication: Fluid replacement
     Dosage: 500 ML, QD
     Route: 041
     Dates: start: 20190903, end: 20190906
  35. TRIMETAZIDINE DIHYDROCHLORIDE [Concomitant]
     Active Substance: TRIMETAZIDINE DIHYDROCHLORIDE
     Indication: Pain
     Dosage: 35 MG, SINGLE
     Route: 048
     Dates: start: 20190905, end: 20190905
  36. TRIMETAZIDINE DIHYDROCHLORIDE [Concomitant]
     Active Substance: TRIMETAZIDINE DIHYDROCHLORIDE
     Dosage: 35 MG, BID
     Route: 048
     Dates: start: 20190906, end: 20190907
  37. MONTMORILLONITE [Concomitant]
     Active Substance: MONTMORILLONITE
     Indication: Diarrhoea
     Dosage: 12 G, SINGLE
     Route: 048
     Dates: start: 20190905, end: 20190905
  38. CLOSTRIDIUM BUTYRICUM SPORES STRAIN M-55 [Concomitant]
     Active Substance: CLOSTRIDIUM BUTYRICUM SPORES STRAIN M-55
     Indication: Diarrhoea
     Dosage: 20 MG, BID
     Route: 048
     Dates: start: 20190905, end: 20190905
  39. CLOSTRIDIUM BUTYRICUM SPORES STRAIN M-55 [Concomitant]
     Active Substance: CLOSTRIDIUM BUTYRICUM SPORES STRAIN M-55
     Dosage: 20 MG, TID
     Route: 048
     Dates: start: 20190906, end: 20190907
  40. ALBUMIN HUMAN [Concomitant]
     Active Substance: ALBUMIN HUMAN
     Indication: Blood albumin decreased
     Dosage: 10 G, QD
     Route: 041
     Dates: start: 20190905
  41. ALBUMIN HUMAN [Concomitant]
     Active Substance: ALBUMIN HUMAN
     Dosage: 10 G, QD
     Route: 041
     Dates: start: 20190905, end: 20190909
  42. ALBUMIN HUMAN [Concomitant]
     Active Substance: ALBUMIN HUMAN
     Dosage: 10 G, BID
     Route: 041
     Dates: start: 20190917, end: 20190917
  43. ALBUMIN HUMAN [Concomitant]
     Active Substance: ALBUMIN HUMAN
     Dosage: 10 G, SINGLE
     Route: 041
     Dates: start: 20190918, end: 20190918
  44. ALBUMIN HUMAN [Concomitant]
     Active Substance: ALBUMIN HUMAN
     Dosage: 10 G, SINGLE
     Route: 041
     Dates: start: 20190920, end: 20190920
  45. ALBUMIN HUMAN [Concomitant]
     Active Substance: ALBUMIN HUMAN
     Dosage: 40 G, SINGLE
     Route: 041
     Dates: start: 20190920, end: 20190920
  46. ALBUMIN HUMAN [Concomitant]
     Active Substance: ALBUMIN HUMAN
     Dosage: 10 G, 5 TIMES PER DAY
     Route: 041
     Dates: start: 20190921, end: 20190921
  47. MAGNESIUM ISOGLYCYRRHIZINATE [Concomitant]
     Active Substance: MAGNESIUM ISOGLYCYRRHIZINATE
     Indication: Liver injury
     Dosage: 30 ML, QD
     Route: 041
     Dates: start: 20190905, end: 20190906
  48. MAGNESIUM ISOGLYCYRRHIZINATE [Concomitant]
     Active Substance: MAGNESIUM ISOGLYCYRRHIZINATE
     Dosage: 30 ML, ST
     Route: 041
     Dates: start: 20190909, end: 20190909
  49. PHOSPHOLIPID [Concomitant]
     Active Substance: PHOSPHOLIPID
     Indication: Liver injury
     Dosage: 697.5 MG, QD
     Route: 041
     Dates: start: 20190905, end: 20190907
  50. PHOSPHOLIPID [Concomitant]
     Active Substance: PHOSPHOLIPID
     Dosage: 697.5 MG, ST
     Route: 041
     Dates: start: 20190909, end: 20190909
  51. ETHAMSYLATE [Concomitant]
     Active Substance: ETHAMSYLATE
     Indication: Platelet count decreased
     Dosage: 1 G, QD
     Route: 041
     Dates: start: 20190905, end: 20190908
  52. ETHAMSYLATE [Concomitant]
     Active Substance: ETHAMSYLATE
     Indication: Haemostasis
     Dosage: 1 G, BID
     Route: 041
     Dates: start: 20190909, end: 20190909
  53. ETHAMSYLATE [Concomitant]
     Active Substance: ETHAMSYLATE
     Dosage: 0.5 MG, ST
     Route: 041
     Dates: start: 20190920, end: 20190920
  54. SODIUM GLYCEROPHOSPHATE [Concomitant]
     Active Substance: SODIUM GLYCEROPHOSPHATE
     Indication: Blood phosphorus decreased
     Dosage: 10 ML, SINGLE
     Route: 041
     Dates: start: 20190905, end: 20190905
  55. SODIUM GLYCEROPHOSPHATE [Concomitant]
     Active Substance: SODIUM GLYCEROPHOSPHATE
     Dosage: 20 ML, SINGLE
     Route: 041
     Dates: start: 20190907, end: 20190907
  56. SODIUM GLYCEROPHOSPHATE [Concomitant]
     Active Substance: SODIUM GLYCEROPHOSPHATE
     Dosage: 10 ML, SINGLE
     Route: 041
     Dates: start: 20190908, end: 20190908
  57. METOCLOPRAMIDE DIHYDROCHLORIDE [Concomitant]
     Indication: Prophylaxis
     Dosage: 10 MG, SINGLE
     Route: 030
     Dates: start: 20190905, end: 20190905
  58. METOCLOPRAMIDE DIHYDROCHLORIDE [Concomitant]
     Indication: Gastrointestinal disorder therapy
     Dosage: 10 MG, ST
     Route: 030
     Dates: start: 20190908, end: 20190908
  59. METOCLOPRAMIDE DIHYDROCHLORIDE [Concomitant]
     Indication: Immune effector cell-associated neurotoxicity syndrome
  60. HEMOCOAGULASE, AGKISTRODON [Concomitant]
     Indication: Haemorrhage prophylaxis
     Dosage: 2 U, BID
     Route: 042
     Dates: start: 20190907, end: 20190907
  61. HEMOCOAGULASE, AGKISTRODON [Concomitant]
     Dosage: 2 U, QD
     Route: 042
     Dates: start: 20190908, end: 20190909
  62. SANYRENE [Concomitant]
     Indication: Prophylaxis
     Dosage: UNK, SINGLE
     Route: 003
     Dates: start: 20190907, end: 20190907
  63. FONDAPARINUX SODIUM [Concomitant]
     Active Substance: FONDAPARINUX SODIUM
     Indication: Fibrin D dimer increased
     Dosage: 2.5 MG, QD
     Route: 058
     Dates: start: 20190907, end: 20190908
  64. COMPOUND GLYCYRRHIZA ORAL SOLUTION [Concomitant]
     Indication: Cough
     Dosage: 180 ML, SINGLE
     Route: 048
     Dates: start: 20190907, end: 20190907
  65. DYPHYLLINE [Concomitant]
     Active Substance: DYPHYLLINE
     Indication: Immune effector cell-associated neurotoxicity syndrome
     Dosage: 0.25 G, BID
     Route: 041
     Dates: start: 20190907, end: 20190907
  66. DYPHYLLINE [Concomitant]
     Active Substance: DYPHYLLINE
     Dosage: 0.5 G, ST
     Route: 041
     Dates: start: 20190908, end: 20190908
  67. PHENOBARBITAL SODIUM [Concomitant]
     Active Substance: PHENOBARBITAL SODIUM
     Indication: Immune effector cell-associated neurotoxicity syndrome
     Dosage: 100 MG
     Route: 030
     Dates: start: 20190907, end: 20190907
  68. PHENOBARBITAL SODIUM [Concomitant]
     Active Substance: PHENOBARBITAL SODIUM
     Dosage: 100 MG, BID
     Route: 030
     Dates: start: 20190908, end: 20190908
  69. METHYLPREDNISOLONE SODIUM SUCCINATE [Concomitant]
     Active Substance: METHYLPREDNISOLONE SODIUM SUCCINATE
     Indication: Immune effector cell-associated neurotoxicity syndrome
     Dosage: 70 MG, ST
     Route: 041
     Dates: start: 20190907, end: 20190907
  70. DIAZEPAM [Concomitant]
     Active Substance: DIAZEPAM
     Indication: Immune effector cell-associated neurotoxicity syndrome
     Dosage: 10 MG, ST
     Route: 042
     Dates: start: 20190907, end: 20190907
  71. FRESH FROZEN PLASMA [Concomitant]
     Active Substance: HUMAN PLASMA
     Indication: Blood fibrinogen decreased
     Dosage: 200 ML, SINGLE
     Route: 041
     Dates: start: 20190907, end: 20190907
  72. MANNITOL [Concomitant]
     Active Substance: MANNITOL
     Indication: Immune effector cell-associated neurotoxicity syndrome
     Dosage: 125 ML, SINGLE
     Route: 041
     Dates: start: 20190907, end: 20190907
  73. MANNITOL [Concomitant]
     Active Substance: MANNITOL
     Dosage: 125 ML, BID
     Route: 041
     Dates: start: 20190908, end: 20190909
  74. DOPAMINE HYDROCHLORIDE [Concomitant]
     Active Substance: DOPAMINE HYDROCHLORIDE
     Indication: Immune effector cell-associated neurotoxicity syndrome
     Dosage: 200 MG, QD
     Route: 041
     Dates: start: 20190907, end: 20190907
  75. DOPAMINE HYDROCHLORIDE [Concomitant]
     Active Substance: DOPAMINE HYDROCHLORIDE
     Dosage: 200 MG, BID
     Route: 041
     Dates: start: 20190908, end: 20190909
  76. DOPAMINE HYDROCHLORIDE [Concomitant]
     Active Substance: DOPAMINE HYDROCHLORIDE
     Dosage: 500 MG, QD
     Route: 041
     Dates: start: 20190916, end: 20190918
  77. PLATELETS [Concomitant]
     Active Substance: HUMAN PLATELET, ALLOGENIC
     Indication: Platelet count decreased
     Dosage: 1 U, SINGLE
     Route: 041
     Dates: start: 20190907, end: 20190907
  78. PLATELETS [Concomitant]
     Active Substance: HUMAN PLATELET, ALLOGENIC
     Dosage: 1 U, SINGLE
     Route: 041
     Dates: start: 20190908, end: 20190908
  79. MIDAZOLAM [Concomitant]
     Active Substance: MIDAZOLAM
     Indication: Immune effector cell-associated neurotoxicity syndrome
     Dosage: 15 MG, QD
     Route: 041
     Dates: start: 20190907, end: 20190908
  80. MIDAZOLAM [Concomitant]
     Active Substance: MIDAZOLAM
     Dosage: 30 MG, SINGLE
     Route: 041
     Dates: start: 20190908, end: 20190908
  81. MIDAZOLAM [Concomitant]
     Active Substance: MIDAZOLAM
     Dosage: 30 MG, BID
     Route: 041
     Dates: start: 20190909, end: 20190909
  82. MIDAZOLAM [Concomitant]
     Active Substance: MIDAZOLAM
     Dosage: 35 MG, ST
     Route: 041
     Dates: start: 20190909, end: 20190909
  83. MIDAZOLAM [Concomitant]
     Active Substance: MIDAZOLAM
     Dosage: 30 MG, QD
     Route: 041
     Dates: start: 20190917, end: 20190918
  84. MIDAZOLAM [Concomitant]
     Active Substance: MIDAZOLAM
     Dosage: 110 MG
     Dates: start: 20190913
  85. DEXAMETHASONE SODIUM PHOSPHATE [Concomitant]
     Active Substance: DEXAMETHASONE SODIUM PHOSPHATE
     Indication: Immune effector cell-associated neurotoxicity syndrome
     Dosage: 10 MG, SINGLE
     Route: 041
     Dates: start: 20190907, end: 20190907
  86. SOLU-MEDROL [Concomitant]
     Active Substance: METHYLPREDNISOLONE SODIUM SUCCINATE
     Indication: Immune effector cell-associated neurotoxicity syndrome
     Dosage: 206 MG, ST
     Route: 041
     Dates: start: 20190908, end: 20190908
  87. SOLU-MEDROL [Concomitant]
     Active Substance: METHYLPREDNISOLONE SODIUM SUCCINATE
     Dosage: 60 MG, BID
     Route: 041
     Dates: start: 20190908, end: 20190909
  88. SOLU-MEDROL [Concomitant]
     Active Substance: METHYLPREDNISOLONE SODIUM SUCCINATE
     Dosage: 1000 MG, QD
     Route: 041
     Dates: start: 20190908, end: 20190909
  89. METARAMINOL BITARTRATE [Concomitant]
     Active Substance: METARAMINOL BITARTRATE
     Indication: Immune effector cell-associated neurotoxicity syndrome
     Dosage: 10 MG, QD
     Route: 041
     Dates: start: 20190908, end: 20190908
  90. METARAMINOL BITARTRATE [Concomitant]
     Active Substance: METARAMINOL BITARTRATE
     Dosage: 10 MG, BID
     Route: 041
     Dates: start: 20190909, end: 20190909
  91. THROMBOPOIETIN [Concomitant]
     Active Substance: THROMBOPOIETIN
     Indication: Platelet count decreased
     Dosage: 15000 U, QD
     Route: 058
     Dates: start: 20190905, end: 20190909
  92. LEVETIRACETAM [Concomitant]
     Active Substance: LEVETIRACETAM
     Indication: Seizure prophylaxis
     Dosage: 0.25 G, SINGLE
     Route: 048
     Dates: start: 20190902, end: 20190902
  93. LEVETIRACETAM [Concomitant]
     Active Substance: LEVETIRACETAM
     Dosage: 0.25 G, BID
     Route: 048
     Dates: start: 20190903, end: 20190907
  94. LEVETIRACETAM [Concomitant]
     Active Substance: LEVETIRACETAM
     Dosage: 0.5 G, BID
     Route: 048
     Dates: start: 20190908, end: 20190908

REACTIONS (13)
  - Gastrointestinal haemorrhage [Fatal]
  - Sepsis [Unknown]
  - Immune effector cell-associated neurotoxicity syndrome [Not Recovered/Not Resolved]
  - Systemic inflammatory response syndrome [Not Recovered/Not Resolved]
  - Acute respiratory failure [Not Recovered/Not Resolved]
  - Multiple organ dysfunction syndrome [Not Recovered/Not Resolved]
  - Obstructive airways disorder [Not Recovered/Not Resolved]
  - Poor peripheral circulation [Not Recovered/Not Resolved]
  - Cytokine release syndrome [Recovering/Resolving]
  - Pyrexia [Recovering/Resolving]
  - Heart rate increased [Unknown]
  - Hypotension [Recovered/Resolved]
  - Acute kidney injury [Not Recovered/Not Resolved]

NARRATIVE: CASE EVENT DATE: 20190902
